FAERS Safety Report 4695321-1 (Version None)
Quarter: 2005Q2

REPORT INFORMATION
  Report Type: 
  Country: None (occurrence: None)
  Receive Date: 20050127
  Receipt Date: 20050127
  Transmission Date: 20051028
  Serious: Yes (Other)
  Sender: FDA-Public Use
  Company Number: None

PATIENT
  Age: 39 Year
  Sex: Female

DRUGS (2)
  1. CLONAZEPAM [Suspect]
     Indication: SCHIZOAFFECTIVE DISORDER
     Dosage: KLONOPIN 2MG PO QID
     Route: 048
  2. ANTIPSYCHOTIC AND ANTIDEPRESSANT MEDICATION [Concomitant]

REACTIONS (4)
  - BITE [None]
  - CONVULSION [None]
  - THERAPEUTIC RESPONSE UNEXPECTED WITH DRUG SUBSTITUTION [None]
  - TONGUE DISORDER [None]
